FAERS Safety Report 5835728-X (Version None)
Quarter: 2008Q3

REPORT INFORMATION
  Report Type: 
  Country: None (occurrence: None)
  Receive Date: 20080806
  Receipt Date: 20080731
  Transmission Date: 20090109
  Serious: Yes (Hospitalization)
  Sender: FDA-Public Use
  Company Number: JP-SANOFI-SYNTHELABO-F01200801255

PATIENT
  Sex: Male

DRUGS (13)
  1. ZOFRAN ZIDIS [Concomitant]
     Dosage: UNK
     Dates: start: 20070720, end: 20071004
  2. KYTRIL [Concomitant]
     Dosage: UNK
     Dates: start: 20070719, end: 20071004
  3. DEXART [Concomitant]
     Dosage: UNK
     Dates: start: 20070719, end: 20071004
  4. DOMPERIDONE [Concomitant]
     Dosage: UNK
     Dates: start: 20070719, end: 20071004
  5. MYSLEE [Concomitant]
     Dosage: UNK
     Dates: start: 20070718
  6. GASTER D [Concomitant]
     Dosage: UNK
     Dates: start: 20070702
  7. MAGMITT [Concomitant]
     Dosage: UNK
     Dates: start: 20070101
  8. LOXONIN [Concomitant]
     Dosage: UNK
  9. AVASTIN [Suspect]
     Route: 041
     Dates: start: 20080214, end: 20080214
  10. IRINOTECAN HCL [Suspect]
     Route: 041
  11. ISOVORIN [Suspect]
     Dosage: UNK
     Route: 041
  12. FLUOROURACIL [Suspect]
     Dosage: UNK
     Route: 042
  13. ELPLAT [Suspect]
     Indication: COLON CANCER METASTATIC
     Route: 041
     Dates: start: 20071115, end: 20071115

REACTIONS (2)
  - INTESTINAL OBSTRUCTION [None]
  - LARGE INTESTINE PERFORATION [None]
